FAERS Safety Report 5503609-7 (Version None)
Quarter: 2007Q4

REPORT INFORMATION
  Report Type: 
  Country: None (occurrence: None)
  Receive Date: 20071030
  Receipt Date: 20071016
  Transmission Date: 20080405
  Serious: Yes (Hospitalization)
  Sender: FDA-Public Use
  Company Number: DSA_30786_2007

PATIENT
  Sex: Female

DRUGS (1)
  1. LORAZEPAM [Suspect]
     Dosage: (20 MG 1X NOT THE PRESCRIBED AMOUNT.  ORAL)
     Route: 048
     Dates: start: 20071016, end: 20071016

REACTIONS (4)
  - INTENTIONAL OVERDOSE [None]
  - SOMNOLENCE [None]
  - SUICIDE ATTEMPT [None]
  - TACHYCARDIA [None]
